FAERS Safety Report 17921215 (Version 1)
Quarter: 2020Q2

REPORT INFORMATION
  Report Type: Spontaneous
  Country: US (occurrence: US)
  Receive Date: 20200622
  Receipt Date: 20200622
  Transmission Date: 20200714
  Serious: No
  Sender: FDA-Public Use
  Company Number: US-AUROBINDO-AUR-APL-2019-027908

PATIENT
  Sex: Male
  Weight: 63 kg

DRUGS (3)
  1. TAMSULOSIN HYDROCHLORIDE CAPSULES USP 0.4 MG [Suspect]
     Active Substance: TAMSULOSIN HYDROCHLORIDE
     Dosage: UNK, ONCE A DAY AT NIGHT
     Route: 048
  2. IBUPROFEN. [Concomitant]
     Active Substance: IBUPROFEN
     Indication: PRODUCT USED FOR UNKNOWN INDICATION
     Dosage: UNK
     Route: 065
  3. TAMSULOSIN HYDROCHLORIDE CAPSULES USP 0.4 MG [Suspect]
     Active Substance: TAMSULOSIN HYDROCHLORIDE
     Indication: BENIGN PROSTATIC HYPERPLASIA
     Dosage: UNK, ONCE A DAY AT NIGHT
     Route: 048

REACTIONS (7)
  - Neuralgia [Unknown]
  - Dizziness [Not Recovered/Not Resolved]
  - Oropharyngeal pain [Recovered/Resolved]
  - Adverse event [Unknown]
  - Feeling abnormal [Not Recovered/Not Resolved]
  - Upper-airway cough syndrome [Unknown]
  - Arthralgia [Unknown]
